FAERS Safety Report 7969142-8 (Version None)
Quarter: 2011Q4

REPORT INFORMATION
  Report Type: 
  Country: None (occurrence: None)
  Receive Date: 20111209
  Receipt Date: 20111130
  Transmission Date: 20120403
  Serious: Yes (Hospitalization, Disabling, Other)
  Sender: FDA-Public Use
  Company Number: US-ELI_LILLY_AND_COMPANY-US201111004971

PATIENT
  Sex: Female

DRUGS (6)
  1. HUMALOG MIX 75/25 [Suspect]
     Dosage: 40 U, BID
     Dates: start: 20111014
  2. HUMULIN 70/30 [Suspect]
     Indication: TYPE 2 DIABETES MELLITUS
     Dosage: 60 U, BID
     Route: 065
     Dates: start: 19900101, end: 20111014
  3. HUMALOG MIX 75/25 [Suspect]
     Dosage: 40 U, BID
     Dates: start: 20111014
  4. GLUCOPHAGE [Concomitant]
     Indication: TYPE 2 DIABETES MELLITUS
  5. HUMALOG MIX 75/25 [Suspect]
     Indication: TYPE 2 DIABETES MELLITUS
     Dosage: 40 U, BID
     Route: 065
     Dates: start: 20111014
  6. METFORMIN HCL [Concomitant]
     Indication: TYPE 2 DIABETES MELLITUS
     Dosage: UNK, BID

REACTIONS (33)
  - EYE DISORDER [None]
  - THROAT IRRITATION [None]
  - NAUSEA [None]
  - DRUG DOSE OMISSION [None]
  - CONTUSION [None]
  - BLOOD GLUCOSE INCREASED [None]
  - LOSS OF CONSCIOUSNESS [None]
  - BLOOD GLUCOSE FLUCTUATION [None]
  - PAIN IN EXTREMITY [None]
  - CONFUSIONAL STATE [None]
  - DIABETIC NEUROPATHY [None]
  - MOVEMENT DISORDER [None]
  - FEELING ABNORMAL [None]
  - RENAL FAILURE [None]
  - HOSPITALISATION [None]
  - TRIGGER FINGER [None]
  - WEIGHT DECREASED [None]
  - LIGAMENT DISORDER [None]
  - PAIN [None]
  - VISUAL ACUITY REDUCED [None]
  - BLINDNESS TRANSIENT [None]
  - COUGH [None]
  - CHOKING [None]
  - ANXIETY [None]
  - PULMONARY CONGESTION [None]
  - DRUG INEFFECTIVE [None]
  - MALAISE [None]
  - VOMITING [None]
  - POST PROCEDURAL COMPLICATION [None]
  - INCORRECT DOSE ADMINISTERED [None]
  - HUNGER [None]
  - LIMB INJURY [None]
  - OEDEMA PERIPHERAL [None]
